FAERS Safety Report 4365234-3 (Version None)
Quarter: 2004Q2

REPORT INFORMATION
  Report Type: 
  Country: None (occurrence: None)
  Receive Date: 20040525
  Receipt Date: 20040408
  Transmission Date: 20050107
  Serious: No
  Sender: FDA-Public Use
  Company Number: PHEH2004US04000

PATIENT
  Age: 81 Year
  Sex: Female

DRUGS (6)
  1. ZELNORM [Suspect]
     Indication: CONSTIPATION
     Dosage: SEE IMAGE
     Route: 048
     Dates: start: 20040405, end: 20040405
  2. ZELNORM [Suspect]
     Indication: CONSTIPATION
     Dosage: SEE IMAGE
     Route: 048
     Dates: start: 20040406, end: 20040406
  3. ZELNORM [Suspect]
     Indication: CONSTIPATION
     Dosage: SEE IMAGE
     Route: 048
     Dates: start: 20040407, end: 20040407
  4. ZELNORM [Suspect]
     Indication: CONSTIPATION
     Dosage: SEE IMAGE
     Route: 048
     Dates: start: 20040408
  5. ZOCOR [Concomitant]
  6. FOSAMAX [Concomitant]

REACTIONS (2)
  - ACCIDENTAL OVERDOSE [None]
  - VISUAL DISTURBANCE [None]
